FAERS Safety Report 4653747-6 (Version None)
Quarter: 2005Q2

REPORT INFORMATION
  Report Type: 
  Country: None (occurrence: None)
  Receive Date: 20050504
  Receipt Date: 20050421
  Transmission Date: 20051028
  Serious: Yes (Other)
  Sender: FDA-Public Use
  Company Number: 2005063372

PATIENT
  Sex: Male

DRUGS (6)
  1. DILANTIN KAPSEAL [Suspect]
     Indication: CONVULSION
     Dosage: (1 IN 1 D), ORAL
     Route: 048
  2. LEVETIRACETAM [Suspect]
     Indication: CONVULSION
  3. VALPROATE SODIUM [Suspect]
     Indication: CONVULSION
  4. ZONISAMIDE (ZONISAMIDE) [Concomitant]
  5. ATENOLOL [Concomitant]
  6. ESCITALOPRAM OXALATE [Concomitant]

REACTIONS (3)
  - ANTICONVULSANT DRUG LEVEL INCREASED [None]
  - ANTICONVULSANT TOXICITY [None]
  - CONVULSION [None]
